FAERS Safety Report 8431905-2 (Version None)
Quarter: 2012Q2

REPORT INFORMATION
  Report Type: 
  Country: None (occurrence: None)
  Receive Date: 20120606
  Receipt Date: 20120530
  Transmission Date: 20120825
  Serious: Yes (Hospitalization, Other)
  Sender: FDA-Public Use
  Company Number: DAV-AE-MTX-11-051

PATIENT
  Age: 54 Year
  Sex: Male
  Weight: 79.8331 kg

DRUGS (5)
  1. METHOTREXATE [Suspect]
     Indication: RHEUMATOID ARTHRITIS
     Dosage: (1 IN 1 WK), ORAL
     Route: 048
     Dates: start: 20110412, end: 20110817
  2. HUMIRA [Suspect]
     Indication: RHEUMATOID ARTHRITIS
     Dosage: (40MG, 1 IN 2 WK), SC
     Route: 058
     Dates: start: 20110405, end: 20110811
  3. PREDNISONE [Concomitant]
  4. FOLIC ACID [Concomitant]
  5. TRAMADOL HCL [Concomitant]

REACTIONS (1)
  - HERPES OPHTHALMIC [None]
